FAERS Safety Report 6624766-5 (Version None)
Quarter: 2010Q1

REPORT INFORMATION
  Report Type: 
  Country: None (occurrence: None)
  Receive Date: 20100310
  Receipt Date: 20100226
  Transmission Date: 20100710
  Serious: Yes (Hospitalization)
  Sender: FDA-Public Use
  Company Number: US-ELI_LILLY_AND_COMPANY-US201003000615

PATIENT
  Age: 59 Year
  Sex: Female

DRUGS (10)
  1. CYMBALTA [Suspect]
     Indication: DEPRESSION
     Dosage: 60 MG, DAILY (1/D)
     Dates: start: 20090201
  2. EVOXAC [Concomitant]
  3. RESTASIS [Concomitant]
  4. SINGULAIR [Concomitant]
  5. PLAQUENIL [Concomitant]
  6. PREVACID [Concomitant]
  7. CARAFATE [Concomitant]
  8. REGLAN [Concomitant]
  9. VITAMIN C [Concomitant]
  10. CALCIUM [Concomitant]

REACTIONS (4)
  - HAEMOTHORAX [None]
  - INTERSTITIAL LUNG DISEASE [None]
  - PNEUMOTHORAX [None]
  - PULMONARY FIBROSIS [None]
